FAERS Safety Report 5555095-9 (Version None)
Quarter: 2007Q4

REPORT INFORMATION
  Report Type: 
  Country: None (occurrence: None)
  Receive Date: 20071213
  Receipt Date: 20071203
  Transmission Date: 20080405
  Serious: Yes (Disabling)
  Sender: FDA-Public Use
  Company Number: JP-ASTRAZENECA-2007AP07750

PATIENT
  Age: 13372 Day
  Sex: Female
  Weight: 76 kg

DRUGS (6)
  1. CRESTOR [Suspect]
     Indication: HYPERCHOLESTEROLAEMIA
     Route: 048
     Dates: start: 20061101, end: 20071016
  2. LOXONIN [Concomitant]
     Indication: BACK PAIN
     Dosage: FREQUENCY UNKNOWN
     Route: 048
     Dates: start: 19990714
  3. BASEN [Concomitant]
     Indication: DIABETES MELLITUS
     Dosage: FREQUENCY UNKNOWN
     Route: 048
     Dates: start: 20040929, end: 20071017
  4. NOVORAPID [Concomitant]
     Indication: DIABETES MELLITUS
     Dosage: FREQUENCY UNKNOWN
     Route: 058
     Dates: start: 20050406
  5. DIOVAN [Concomitant]
     Indication: HYPERTENSION
     Dosage: FREQUENCY UNKNOWN
     Route: 048
     Dates: start: 20060329
  6. NORVASC [Concomitant]
     Indication: HYPERTENSION
     Dosage: FREQUENCY UNKNOWN
     Route: 048
     Dates: start: 20060826

REACTIONS (1)
  - RENAL FAILURE CHRONIC [None]
